FAERS Safety Report 11722476 (Version 1)
Quarter: 2015Q4

REPORT INFORMATION
  Report Type: Spontaneous
  Country: US (occurrence: None)
  Receive Date: 20151110
  Receipt Date: 20151110
  Transmission Date: 20160304
  Serious: No
  Sender: FDA-Public Use
  Company Number: None

PATIENT
  Age: 23 Year
  Sex: Male
  Weight: 90.72 kg

DRUGS (1)
  1. ANTIPYRINE AND BENZOCAINE OTIC [Suspect]
     Active Substance: ANTIPYRINE\BENZOCAINE
     Indication: TYMPANIC MEMBRANE PERFORATION
     Dosage: NO SPECIFIC AMOUNT AS NEEDED INTO THE EAR

REACTIONS (2)
  - Malaise [None]
  - Medication error [None]

NARRATIVE: CASE EVENT DATE: 20151108
